FAERS Safety Report 5296830-7 (Version None)
Quarter: 2007Q2

REPORT INFORMATION
  Report Type: 
  Country: None (occurrence: None)
  Receive Date: 20070413
  Receipt Date: 20070402
  Transmission Date: 20071010
  Serious: Yes (Other)
  Sender: FDA-Public Use
  Company Number: PHEH2007US03853

PATIENT
  Age: 54 Year

DRUGS (1)
  1. ZELNORM [Suspect]
     Dosage: UNK, UNK

REACTIONS (2)
  - CARDIAC VALVE DISEASE [None]
  - HEART RATE INCREASED [None]
